FAERS Safety Report 9685199 (Version 3)
Quarter: 2014Q2

REPORT INFORMATION
  Report Type: Spontaneous
  Country: JP (occurrence: JP)
  Receive Date: 20131113
  Receipt Date: 20140403
  Transmission Date: 20141212
  Serious: Yes (Hospitalization, Disabling)
  Sender: FDA-Public Use
  Company Number: JP-SA-2013SA116178

PATIENT
  Age: 68 Year
  Sex: Male

DRUGS (7)
  1. DDAVP [Suspect]
     Indication: DIABETES INSIPIDUS
     Dosage: DOSE: 1 PUSH?ROUTE: INTRANASAL?STRENGTH: 0.01%
     Route: 045
     Dates: start: 20131101
  2. MINIRIN [Suspect]
     Indication: DIABETES INSIPIDUS
     Route: 048
     Dates: start: 20131025, end: 20131101
  3. AMLODIPINE BESILATE [Suspect]
     Indication: HYPERTENSION
     Dosage: TELMISARTAN 40MG?AMLODIPINE BESYLATE 5MG
     Route: 048
     Dates: start: 1993, end: 20131107
  4. MYSLEE [Suspect]
     Indication: INSOMNIA
     Route: 048
     Dates: start: 1993, end: 20131107
  5. URSO [Concomitant]
     Indication: HEPATIC FUNCTION ABNORMAL
     Route: 048
     Dates: start: 20131107
  6. CORTRIL [Concomitant]
     Indication: ADRENAL INSUFFICIENCY
     Route: 048
     Dates: start: 20131028
  7. THYRADIN-S [Concomitant]
     Indication: HYPOTHYROIDISM
     Route: 048
     Dates: start: 20131125

REACTIONS (2)
  - Neutrophil count decreased [Recovered/Resolved]
  - Hepatic function abnormal [Recovered/Resolved]
